FAERS Safety Report 4290342-5 (Version None)
Quarter: 2004Q1

REPORT INFORMATION
  Report Type: 
  Country: None (occurrence: None)
  Receive Date: 20040209
  Receipt Date: 20040127
  Transmission Date: 20041129
  Serious: Yes (Hospitalization)
  Sender: FDA-Public Use
  Company Number: 01-02-0041

PATIENT
  Age: 59 Year
  Sex: Female

DRUGS (7)
  1. THALOMID [Suspect]
     Indication: MULTIPLE MYELOMA
     Dosage: 200 MG, QD, ORAL
     Route: 048
     Dates: start: 20001127, end: 20010401
  2. DECADRON [Suspect]
     Indication: MULTIPLE MYELOMA
     Dosage: 40 MG, DAILY PULSED DOSING,
     Dates: start: 20001101, end: 20010401
  3. DEXAMETHASONE [Suspect]
     Dates: start: 20001101, end: 20010401
  4. LASIX [Concomitant]
  5. FLEXERIL [Concomitant]
  6. IBUPROFEN [Concomitant]
  7. PREMARIN [Concomitant]

REACTIONS (10)
  - ANOREXIA [None]
  - DIVERTICULAR PERFORATION [None]
  - DIVERTICULITIS [None]
  - IMMUNOSUPPRESSION [None]
  - INTERNATIONAL NORMALISED RATIO INCREASED [None]
  - INTESTINAL OBSTRUCTION [None]
  - LARGE INTESTINE PERFORATION [None]
  - PERITONITIS [None]
  - PROTHROMBIN TIME PROLONGED [None]
  - SEPSIS [None]
